FAERS Safety Report 19581064 (Version 1)
Quarter: 2021Q3

REPORT INFORMATION
  Report Type: Spontaneous
  Country: US (occurrence: US)
  Receive Date: 20210719
  Receipt Date: 20210719
  Transmission Date: 20211014
  Serious: No
  Sender: FDA-Public Use
  Company Number: US-NOVOPROD-810421

PATIENT
  Age: 71 Year
  Sex: Female

DRUGS (2)
  1. OZEMPIC [Suspect]
     Active Substance: SEMAGLUTIDE
     Indication: INSULIN RESISTANCE
  2. OZEMPIC [Suspect]
     Active Substance: SEMAGLUTIDE
     Indication: OVERWEIGHT
     Dosage: 0.25 MG, QW
     Route: 058
     Dates: start: 20210430

REACTIONS (6)
  - Motion sickness [Recovered/Resolved]
  - Abdominal pain upper [Recovered/Resolved]
  - Off label use [Unknown]
  - Somnolence [Recovered/Resolved]
  - Nausea [Recovered/Resolved]
  - Flatulence [Recovered/Resolved]

NARRATIVE: CASE EVENT DATE: 20210430
